FAERS Safety Report 18420493 (Version 1)
Quarter: 2020Q4

REPORT INFORMATION
  Report Type: Spontaneous
  Country: FR (occurrence: FR)
  Receive Date: 20201023
  Receipt Date: 20201023
  Transmission Date: 20210114
  Serious: Yes (Other)
  Sender: FDA-Public Use
  Company Number: FR-MYLANLABS-2020M1088544

PATIENT
  Age: 95 Year
  Sex: Female

DRUGS (1)
  1. FLUCONAZOLE MYLAN 10 MG/ML POUDRE POUR SUSPENSION BUVABLE [Suspect]
     Active Substance: FLUCONAZOLE
     Indication: PRODUCT USED FOR UNKNOWN INDICATION
     Dosage: 5 MILLILITER, TOTAL
     Route: 045
     Dates: start: 20200918, end: 20200918

REACTIONS (4)
  - Choking [Recovered/Resolved]
  - Incorrect route of product administration [Recovered/Resolved]
  - Nasal discomfort [Recovered/Resolved]
  - Product preparation error [Recovered/Resolved]

NARRATIVE: CASE EVENT DATE: 20200918
